FAERS Safety Report 4761726-3 (Version None)
Quarter: 2005Q3

REPORT INFORMATION
  Report Type: 
  Country: None (occurrence: None)
  Receive Date: 20050906
  Receipt Date: 20050826
  Transmission Date: 20060218
  Serious: Yes (Hospitalization)
  Sender: FDA-Public Use
  Company Number: JP-JNJFOC-20050805839

PATIENT
  Age: 86 Year
  Sex: Female

DRUGS (2)
  1. OFLOCET [Suspect]
     Indication: PNEUMONIA
     Route: 042
     Dates: end: 20050614
  2. ROCEPHIN [Suspect]
     Indication: PNEUMONIA
     Route: 042
     Dates: end: 20050614

REACTIONS (4)
  - COMA [None]
  - MYOCLONUS [None]
  - OVERDOSE [None]
  - RENAL FAILURE [None]
